FAERS Safety Report 7397074-5 (Version None)
Quarter: 2011Q2

REPORT INFORMATION
  Report Type: 
  Country: None (occurrence: None)
  Receive Date: 20110406
  Receipt Date: 20110329
  Transmission Date: 20111010
  Serious: Yes (Hospitalization)
  Sender: FDA-Public Use
  Company Number: A0773208A

PATIENT
  Age: 37 Year
  Sex: Male
  Weight: 130 kg

DRUGS (14)
  1. FAMOTIDINE [Concomitant]
  2. OXYCODONE HCL AND ACETAMINOPHEN [Concomitant]
  3. HYDROCHLOROTHIAZIDE [Concomitant]
  4. ALBUTEROL [Concomitant]
  5. NEXIUM [Concomitant]
  6. SEREVENT [Concomitant]
  7. CIPROFLOXACIN [Concomitant]
  8. CLONIDINE [Concomitant]
  9. AVANDIA [Suspect]
     Indication: DIABETES MELLITUS
     Dosage: 8MG PER DAY
     Route: 048
     Dates: start: 20020313, end: 20050129
  10. FLOVENT [Concomitant]
  11. ZOLOFT [Concomitant]
  12. ALTACE [Concomitant]
  13. OXYCONTIN [Concomitant]
  14. VIAGRA [Concomitant]

REACTIONS (2)
  - CARDIAC FAILURE CONGESTIVE [None]
  - CARDIOMYOPATHY [None]
